FAERS Safety Report 8939982 (Version 1)
Quarter: 2012Q4

REPORT INFORMATION
  Report Type: 
  Country: US (occurrence: US)
  Receive Date: 20121203
  Receipt Date: 20121203
  Transmission Date: 20130627
  Serious: Yes (Other)
  Sender: FDA-Public Use
  Company Number: US-BAYER-2012-125038

PATIENT
  Age: 34 Year
  Sex: Female

DRUGS (2)
  1. BETASERON [Suspect]
     Indication: MULTIPLE SCLEROSIS
     Dosage: 8 miu, QOD
     Route: 058
     Dates: start: 20120913
  2. INTRAUTERINE CONTRACEPTIVE DEVICE [Suspect]
     Indication: BIRTH CONTROL
     Dosage: UNK
     Dates: start: 2008

REACTIONS (8)
  - Premenstrual syndrome [Recovered/Resolved]
  - Metrorrhagia [Recovered/Resolved]
  - Abdominal pain [Recovered/Resolved]
  - Nausea [Recovered/Resolved]
  - Chromaturia [None]
  - Bone pain [Recovered/Resolved]
  - Myalgia [Recovered/Resolved]
  - Injection site bruising [None]
